FAERS Safety Report 9461441 (Version 4)
Quarter: 2013Q4

REPORT INFORMATION
  Report Type: Spontaneous
  Country: US (occurrence: US)
  Receive Date: 20130816
  Receipt Date: 20131028
  Transmission Date: 20140711
  Serious: Yes (Other)
  Sender: FDA-Public Use
  Company Number: US-PFIZER INC-2013237262

PATIENT
  Age: 72 Year
  Sex: Female
  Weight: 44 kg

DRUGS (3)
  1. XELJANZ [Suspect]
     Indication: ARTHRITIS
     Dosage: 5 MG ONCE DAILY
     Dates: start: 2013, end: 201310
  2. LISINOPRIL [Concomitant]
     Indication: HYPERTENSION
     Dosage: 40 MG, 1X/DAY
  3. AMLODIPINE BESILATE [Concomitant]
     Indication: HYPERTENSION
     Dosage: 5 MG, 1X/DAY

REACTIONS (5)
  - Urinary tract infection [Unknown]
  - Kidney infection [Unknown]
  - Drug effect incomplete [Unknown]
  - Cystitis [Unknown]
  - Bladder pain [Unknown]
